FAERS Safety Report 6415699-8 (Version None)
Quarter: 2009Q4

REPORT INFORMATION
  Report Type: 
  Country: None (occurrence: None)
  Receive Date: 20091021
  Receipt Date: 20091006
  Transmission Date: 20100525
  Serious: Yes (Death, Hospitalization, Other)
  Sender: FDA-Public Use
  Company Number: WAES 0909USA03201

PATIENT
  Age: 77 Year
  Sex: Male

DRUGS (8)
  1. VYTORIN [Suspect]
     Indication: ACUTE CORONARY SYNDROME
     Dosage: 10-40 MG/DAILY PO
     Route: 048
     Dates: start: 20070517, end: 20090915
  2. TAB PLACEBO (UNSPECIFIED) [Suspect]
     Indication: ACUTE CORONARY SYNDROME
     Dosage: PO
     Route: 048
     Dates: start: 20070517, end: 20090915
  3. LEXOTAN [Concomitant]
  4. CLOPIDOGREL BISULFATE [Concomitant]
  5. FUROSEMIDE [Concomitant]
  6. METFORMIN [Concomitant]
  7. METOPROLOL SUCCINATE [Concomitant]
  8. OMEPRAZOLE [Concomitant]

REACTIONS (16)
  - ANAEMIA OF CHRONIC DISEASE [None]
  - ARRHYTHMIA [None]
  - ARTERIAL INJURY [None]
  - ARTERIAL RUPTURE [None]
  - CARDIAC ARREST [None]
  - CARDIAC FAILURE [None]
  - FATIGUE [None]
  - HYPOVOLAEMIC SHOCK [None]
  - LOWER GASTROINTESTINAL HAEMORRHAGE [None]
  - LYMPHOPROLIFERATIVE DISORDER [None]
  - MALAISE [None]
  - NO THERAPEUTIC RESPONSE [None]
  - OEDEMA PERIPHERAL [None]
  - OPERATIVE HAEMORRHAGE [None]
  - SILICOSIS [None]
  - SYNCOPE [None]
